FAERS Safety Report 17991284 (Version 1)
Quarter: 2020Q3

REPORT INFORMATION
  Report Type: Spontaneous
  Country: AU (occurrence: AU)
  Receive Date: 20200707
  Receipt Date: 20200707
  Transmission Date: 20201103
  Serious: Yes (Other)
  Sender: FDA-Public Use
  Company Number: AU-ASTRAZENECA-2020SE84735

PATIENT
  Age: 68 Year
  Sex: Female

DRUGS (6)
  1. YONDELIS [Concomitant]
     Active Substance: TRABECTEDIN
     Dates: start: 201604
  2. OLAPARIB. [Suspect]
     Active Substance: OLAPARIB
     Route: 048
     Dates: start: 201703, end: 201802
  3. CARBOPLATIN. [Concomitant]
     Active Substance: CARBOPLATIN
     Dates: start: 201208
  4. PACLITAXEL. [Concomitant]
     Active Substance: PACLITAXEL
     Dates: start: 201301
  5. CISPLATIN. [Concomitant]
     Active Substance: CISPLATIN
     Dates: start: 201803
  6. GEMCITABINE. [Concomitant]
     Active Substance: GEMCITABINE
     Dates: start: 201804

REACTIONS (2)
  - Malignant neoplasm progression [Unknown]
  - Mononeuropathy [Unknown]

NARRATIVE: CASE EVENT DATE: 201802
